FAERS Safety Report 11096483 (Version 1)
Quarter: 2015Q2

REPORT INFORMATION
  Report Type: Spontaneous
  Country: RU (occurrence: RU)
  Receive Date: 20150507
  Receipt Date: 20150507
  Transmission Date: 20150821
  Serious: Yes (Other)
  Sender: FDA-Public Use
  Company Number: RU-JNJFOC-20150320890

PATIENT
  Age: 86 Year
  Sex: Female
  Weight: 65 kg

DRUGS (2)
  1. XARELTO [Suspect]
     Active Substance: RIVAROXABAN
     Indication: CEREBROVASCULAR ACCIDENT PROPHYLAXIS
     Route: 048
  2. XARELTO [Suspect]
     Active Substance: RIVAROXABAN
     Indication: ATRIAL FIBRILLATION
     Route: 048

REACTIONS (5)
  - Loss of consciousness [Unknown]
  - Conjunctival haemorrhage [Recovered/Resolved]
  - Vein disorder [Unknown]
  - Peripheral vascular disorder [Recovered/Resolved]
  - Arthralgia [Unknown]
